FAERS Safety Report 6676686-8 (Version None)
Quarter: 2010Q2

REPORT INFORMATION
  Report Type: 
  Country: None (occurrence: None)
  Receive Date: 20100409
  Receipt Date: 20100409
  Transmission Date: 20101027
  Serious: Yes (Life-Threatening, Hospitalization, Disabling, Other)
  Sender: FDA-Public Use
  Company Number: None

PATIENT
  Sex: Female
  Weight: 90.7194 kg

DRUGS (2)
  1. IOHEXOL 480 MG IOHEXOL 480 MG UNKNOWN FRANKLIN SQUARE ER ADMINSTER CON [Suspect]
     Indication: RECTAL HAEMORRHAGE
     Dosage: MIDNIGHT AT ER 11/2009 480 MG AT 11/2009
     Dates: start: 20091101
  2. IOHEXOL 480 MG IOHEXOL 480 MG UNKNOWN FRANKLIN SQUARE ER ADMINSTER CON [Suspect]
     Indication: X-RAY WITH CONTRAST LOWER GASTROINTESTINAL TRACT
     Dosage: MIDNIGHT AT ER 11/2009 480 MG AT 11/2009
     Dates: start: 20091101

REACTIONS (11)
  - ABDOMINAL PAIN [None]
  - ABNORMAL SENSATION IN EYE [None]
  - ARTHRALGIA [None]
  - DIARRHOEA [None]
  - HEADACHE [None]
  - HYPOAESTHESIA [None]
  - MUSCULAR WEAKNESS [None]
  - MUSCULOSKELETAL STIFFNESS [None]
  - NECK PAIN [None]
  - PAIN IN EXTREMITY [None]
  - SENSATION OF HEAVINESS [None]
